FAERS Safety Report 8549541-6 (Version None)
Quarter: 2012Q3

REPORT INFORMATION
  Report Type: 
  Country: None (occurrence: None)
  Receive Date: 20120730
  Receipt Date: 20120723
  Transmission Date: 20120928
  Serious: Yes (Hospitalization)
  Sender: FDA-Public Use
  Company Number: FR-PFIZER INC-2012143052

PATIENT
  Age: 28 Year
  Sex: Male

DRUGS (22)
  1. GANCICLOVIR SODIUM [Suspect]
     Dosage: UNK
     Dates: start: 20120430, end: 20120507
  2. COLIMYCINE [Concomitant]
     Dosage: UNK
     Dates: start: 20120226, end: 20120409
  3. COLIMYCINE [Concomitant]
     Dosage: UNK
     Dates: start: 20120401, end: 20120511
  4. OMEPRAZOLE [Concomitant]
     Dosage: UNK
     Route: 048
  5. RIFADIN [Suspect]
     Dosage: UNK
     Route: 042
     Dates: start: 20120407, end: 20120511
  6. LOVENOX [Concomitant]
     Dosage: UNK
     Dates: start: 20120213
  7. PAROXETINE HCL [Concomitant]
     Dosage: UNK
     Route: 048
     Dates: start: 20120313
  8. SOLU-MEDROL [Suspect]
     Dosage: UNK
     Dates: start: 20120504, end: 20120517
  9. MUCOFLUID [Concomitant]
     Dosage: UNK
     Route: 048
     Dates: start: 20120512
  10. ATARAX [Concomitant]
     Dosage: UNK
     Dates: start: 20120412, end: 20120502
  11. ATARAX [Concomitant]
     Dosage: UNK
     Dates: start: 20120319, end: 20120402
  12. TRAMADOL HCL [Concomitant]
     Dosage: UNK
     Dates: start: 20120515
  13. TRAMADOL HCL [Concomitant]
     Dosage: UNK
     Dates: start: 20120229, end: 20120306
  14. NEURONTIN [Concomitant]
     Dosage: UNK
     Route: 048
     Dates: start: 20120217
  15. OMEPRAZOLE [Concomitant]
     Dosage: UNK
     Dates: start: 20120512, end: 20120516
  16. ALODONT [Concomitant]
     Dosage: UNK
     Route: 048
     Dates: start: 20120214
  17. BISOPROLOL FUMARATE [Concomitant]
     Dosage: UNK
     Route: 048
  18. OMEPRAZOLE [Concomitant]
     Dosage: UNK
     Dates: start: 20120213, end: 20120215
  19. ATARAX [Concomitant]
     Dosage: UNK
     Dates: start: 20120515
  20. TRAMADOL HCL [Concomitant]
     Dosage: UNK
     Dates: start: 20120412, end: 20120502
  21. COLIMYCINE [Concomitant]
     Dosage: UNK
     Dates: start: 20120317, end: 20120323
  22. COLIMYCINE [Concomitant]
     Dosage: UNK
     Dates: start: 20120518

REACTIONS (2)
  - NEUTROPENIA [None]
  - LEUKOPENIA [None]
